FAERS Safety Report 7857219-7 (Version None)
Quarter: 2011Q4

REPORT INFORMATION
  Report Type: 
  Country: None (occurrence: None)
  Receive Date: 20111027
  Receipt Date: 20111019
  Transmission Date: 20120403
  Serious: Yes (Hospitalization)
  Sender: FDA-Public Use
  Company Number: US-BIOGENIDEC-2010BI040681

PATIENT
  Age: 37 Year
  Sex: Female

DRUGS (5)
  1. TYSABRI [Suspect]
     Indication: MULTIPLE SCLEROSIS
     Route: 042
     Dates: start: 20090622, end: 20091020
  2. TYSABRI [Suspect]
     Route: 042
     Dates: start: 20100511, end: 20100708
  3. TYSABRI [Suspect]
     Route: 042
     Dates: start: 20110805, end: 20110901
  4. TYSABRI [Suspect]
     Route: 042
     Dates: start: 20101221, end: 20110412
  5. AVONEX [Concomitant]
     Indication: MULTIPLE SCLEROSIS
     Route: 030

REACTIONS (6)
  - DEVICE RELATED INFECTION [None]
  - MULTIPLE SCLEROSIS [None]
  - FALL [None]
  - INCISION SITE HAEMORRHAGE [None]
  - OSTEONECROSIS [None]
  - DEVICE DISLOCATION [None]
